FAERS Safety Report 6483057-6 (Version None)
Quarter: 2009Q4

REPORT INFORMATION
  Report Type: 
  Country: None (occurrence: None)
  Receive Date: 20091208
  Receipt Date: 20091208
  Transmission Date: 20100525
  Serious: Yes (Other)
  Sender: FDA-Public Use
  Company Number: None

PATIENT
  Age: 60 Year
  Sex: Female
  Weight: 61.2356 kg

DRUGS (4)
  1. ALENDRONATE SODIUM [Suspect]
     Indication: NERVOUS SYSTEM DISORDER
     Dosage: 70 MG 1 X PER WEEK ORAL 047
     Route: 048
     Dates: start: 20030101, end: 20090101
  2. ALENDRONATE SODIUM [Suspect]
     Indication: OSTEOPENIA
     Dosage: 70 MG 1 X PER WEEK ORAL 047
     Route: 048
     Dates: start: 20030101, end: 20090101
  3. FOSAMAX [Suspect]
     Indication: MUSCLE DISORDER
     Dosage: 70 MG 1 X PER WEEK ORAL 047
  4. ACTONEL [Suspect]
     Indication: TINNITUS

REACTIONS (8)
  - ARTHRALGIA [None]
  - DRY SKIN [None]
  - HYPERSOMNIA [None]
  - NEURALGIA [None]
  - PAIN [None]
  - PERIARTHRITIS [None]
  - SKIN CHAPPED [None]
  - TENDON DISORDER [None]
